FAERS Safety Report 24342866 (Version 1)
Quarter: 2024Q3

REPORT INFORMATION
  Report Type: Spontaneous
  Country: US (occurrence: None)
  Receive Date: 20240919
  Receipt Date: 20240919
  Transmission Date: 20241016
  Serious: No
  Sender: Public
  Company Number: None

PATIENT
  Age: 37 Year
  Sex: Female
  Weight: 50.8 kg

DRUGS (3)
  1. ARIPIPRAZOLE [Suspect]
     Active Substance: ARIPIPRAZOLE
     Indication: Psychotic disorder
     Dates: end: 20240221
  2. LISDEXAMFETAMINE DIMESYLATE [Concomitant]
  3. BUPRENORPHINE/NALOXONE [Concomitant]

REACTIONS (4)
  - Subchorionic haematoma [None]
  - Haemorrhage in pregnancy [None]
  - Exposure during pregnancy [None]
  - Amniorrhoea [None]

NARRATIVE: CASE EVENT DATE: 20240714
